FAERS Safety Report 12164226 (Version 1)
Quarter: 2016Q1

REPORT INFORMATION
  Report Type: Spontaneous
  Country: US (occurrence: US)
  Receive Date: 20160309
  Receipt Date: 20160309
  Transmission Date: 20160526
  Serious: No
  Sender: FDA-Public Use
  Company Number: US-BAUSCH-BL-2015-009263

PATIENT
  Sex: Female

DRUGS (1)
  1. CARTEOLOL HYDROCHLORIDE OPHTHALMIC SOLUTION USP 1% [Suspect]
     Active Substance: CARTEOLOL HYDROCHLORIDE
     Indication: PRODUCT USED FOR UNKNOWN INDICATION
     Route: 047

REACTIONS (7)
  - Speech disorder [Unknown]
  - Swollen tongue [Unknown]
  - Chest pain [Unknown]
  - Headache [Unknown]
  - Tongue movement disturbance [Unknown]
  - Tardive dyskinesia [Unknown]
  - Dyskinesia [Unknown]
